FAERS Safety Report 6957599-0 (Version None)
Quarter: 2010Q3

REPORT INFORMATION
  Report Type: 
  Country: None (occurrence: None)
  Receive Date: 20100831
  Receipt Date: 20100818
  Transmission Date: 20110219
  Serious: Yes (Death, Hospitalization)
  Sender: FDA-Public Use
  Company Number: JP-SANOFI-AVENTIS-200912472JP

PATIENT
  Age: 76 Year
  Sex: Male
  Weight: 48 kg

DRUGS (5)
  1. RILUZOLE [Suspect]
     Indication: AMYOTROPHIC LATERAL SCLEROSIS
     Route: 048
     Dates: start: 20060629, end: 20090416
  2. AMBROXOL [Suspect]
     Indication: UPPER RESPIRATORY TRACT INFLAMMATION
     Route: 048
     Dates: start: 20090108, end: 20090416
  3. CELTECT [Concomitant]
     Route: 048
     Dates: start: 20081016, end: 20090416
  4. METHYCOBAL [Concomitant]
     Indication: AMYOTROPHIC LATERAL SCLEROSIS
     Route: 048
     Dates: start: 20060127, end: 20090416
  5. ASTOMIN [Concomitant]
     Indication: UPPER RESPIRATORY TRACT INFLAMMATION
     Route: 048
     Dates: start: 20090205, end: 20090416

REACTIONS (3)
  - CONDITION AGGRAVATED [None]
  - PEMPHIGOID [None]
  - RESPIRATORY FAILURE [None]
